FAERS Safety Report 20769162 (Version 3)
Quarter: 2022Q2

REPORT INFORMATION
  Report Type: Spontaneous
  Country: DE (occurrence: DE)
  Receive Date: 20220429
  Receipt Date: 20220509
  Transmission Date: 20220721
  Serious: Yes (Other)
  Sender: FDA-Public Use
  Company Number: DE-NOVARTISPH-NVSC2022DE096123

PATIENT
  Age: 57 Year
  Sex: Female

DRUGS (1)
  1. EVEROLIMUS [Suspect]
     Active Substance: EVEROLIMUS
     Indication: Product used for unknown indication
     Dosage: UNK, QD
     Route: 065
     Dates: start: 202112, end: 20220428

REACTIONS (4)
  - Osteoarthritis [Not Recovered/Not Resolved]
  - Arthralgia [Unknown]
  - Limb discomfort [Unknown]
  - Inflammation [Unknown]
